FAERS Safety Report 19189670 (Version 2)
Quarter: 2021Q2

REPORT INFORMATION
  Report Type: Spontaneous
  Country: FR (occurrence: FR)
  Receive Date: 20210428
  Receipt Date: 20210506
  Transmission Date: 20210717
  Serious: Yes (Hospitalization)
  Sender: FDA-Public Use
  Company Number: FR-PFIZER INC-2021469873

PATIENT
  Age: 90 Year
  Sex: Female
  Weight: 74 kg

DRUGS (7)
  1. AMOXICILLIN. [Concomitant]
     Active Substance: AMOXICILLIN
     Indication: ENTEROCOCCAL INFECTION
     Dosage: 12 GRAM
     Route: 042
     Dates: start: 20210106, end: 20210126
  2. AMLODIPINE BESILATE [Suspect]
     Active Substance: AMLODIPINE BESYLATE
     Indication: HYPERTENSION
     Dosage: SNC 5MG, VO, 1?0?1
     Route: 065
     Dates: start: 20210126, end: 20210205
  3. LANZOR [Suspect]
     Active Substance: LANSOPRAZOLE
     Dosage: UNK UNK, Q1HR
     Route: 065
     Dates: start: 20210126, end: 20210205
  4. CEFTRIAXONE. [Concomitant]
     Active Substance: CEFTRIAXONE
     Indication: ENTEROCOCCAL INFECTION
     Dosage: 4 GRAM, QD
     Route: 042
     Dates: start: 20210106, end: 20210126
  5. FEMARA [Concomitant]
     Active Substance: LETROZOLE
     Dosage: VO, 2.5MG/DAY
     Route: 065
  6. NICARDIPINE [NICARDIPINE HYDROCHLORIDE] [Concomitant]
     Active Substance: NICARDIPINE HYDROCHLORIDE
     Dosage: 20 MILLIGRAM, QD
     Route: 065
     Dates: end: 20210125
  7. CALCIPARINE [Suspect]
     Active Substance: HEPARIN CALCIUM
     Dosage: 5000 IU/2ML, 2X/DAY
     Route: 058
     Dates: start: 20210126, end: 20210205

REACTIONS (1)
  - Cholestasis [Recovered/Resolved]

NARRATIVE: CASE EVENT DATE: 20210205
